FAERS Safety Report 15130497 (Version 2)
Quarter: 2018Q3

REPORT INFORMATION
  Report Type: Spontaneous
  Country: IT (occurrence: IT)
  Receive Date: 20180711
  Receipt Date: 20180808
  Transmission Date: 20181010
  Serious: Yes (Death)
  Sender: FDA-Public Use
  Company Number: IT-BAYER-2018-125870

PATIENT
  Age: 68 Year
  Sex: Male

DRUGS (1)
  1. REGORAFENIB. [Suspect]
     Active Substance: REGORAFENIB
     Indication: COLORECTAL CANCER METASTATIC
     Dosage: DAILY DOSE 80 MG
     Route: 048
     Dates: start: 201610, end: 201712

REACTIONS (3)
  - Palmar-plantar erythrodysaesthesia syndrome [None]
  - Colorectal cancer metastatic [Fatal]
  - General physical health deterioration [None]

NARRATIVE: CASE EVENT DATE: 201710
